FAERS Safety Report 7124994-9 (Version None)
Quarter: 2010Q4

REPORT INFORMATION
  Report Type: 
  Country: None (occurrence: None)
  Receive Date: 20101123
  Receipt Date: 20101123
  Transmission Date: 20110411
  Serious: No
  Sender: FDA-Public Use
  Company Number: None

PATIENT
  Age: 41 Year
  Sex: Female

DRUGS (2)
  1. HYDROCODONE POLISTIREX AND CHLORPHENIRAMINE POLISTIREX [Suspect]
     Indication: COUGH
     Dosage: ONCE A DAY AT BEDTIME
     Dates: start: 20101018
  2. POLISTIREX ER ORAL SUSPENSION, 10MG + 8 MG PER 5 ML [Suspect]

REACTIONS (4)
  - COUGH [None]
  - DRUG EFFECT DECREASED [None]
  - PRODUCT QUALITY ISSUE [None]
  - PRODUCT SUBSTITUTION ISSUE [None]
